FAERS Safety Report 18917773 (Version 3)
Quarter: 2022Q2

REPORT INFORMATION
  Report Type: Spontaneous
  Country: BR (occurrence: BR)
  Receive Date: 20210219
  Receipt Date: 20220405
  Transmission Date: 20220721
  Serious: Yes (Other)
  Sender: FDA-Public Use
  Company Number: NVSC2021BR036248

PATIENT
  Age: 64 Year
  Sex: Female
  Weight: 90 kg

DRUGS (5)
  1. TEGRETOL [Suspect]
     Active Substance: CARBAMAZEPINE
     Indication: Epilepsy
     Dosage: 200 MG (HALF TABLET)
     Route: 048
  2. TOPAMAX [Concomitant]
     Active Substance: TOPIRAMATE
     Indication: Epilepsy
     Dosage: 25 MG, QD
     Route: 048
  3. COSENTYX [Concomitant]
     Active Substance: SECUKINUMAB
     Indication: Psoriatic arthropathy
     Dosage: 150 MG (2 PEN), QW
     Route: 058
     Dates: start: 202005, end: 202006
  4. COSENTYX [Concomitant]
     Active Substance: SECUKINUMAB
     Dosage: 150 MG (2 PEN), QMO
     Route: 058
     Dates: start: 202006, end: 20201228
  5. DAIVOBET [Concomitant]
     Active Substance: BETAMETHASONE DIPROPIONATE\CALCIPOTRIENE
     Indication: Psoriatic arthropathy
     Dosage: UNK, QD (STARTED 3 TO 4 YEARS AGO)
     Route: 061

REACTIONS (3)
  - Psoriasis [Recovered/Resolved]
  - Contrast media allergy [Unknown]
  - Rash macular [Unknown]

NARRATIVE: CASE EVENT DATE: 20201101
